FAERS Safety Report 13438977 (Version 1)
Quarter: 2017Q2

REPORT INFORMATION
  Report Type: Spontaneous
  Country: US (occurrence: US)
  Receive Date: 20170413
  Receipt Date: 20170413
  Transmission Date: 20170830
  Serious: No
  Sender: FDA-Public Use
  Company Number: US-ROCHE-593914

PATIENT
  Age: 41 Year
  Sex: Female

DRUGS (2)
  1. XENICAL [Suspect]
     Active Substance: ORLISTAT
     Indication: WEIGHT CONTROL
     Dosage: DRUG STOPPED A COUPLE OF YEARS AGO
     Route: 065
  2. XENICAL [Suspect]
     Active Substance: ORLISTAT
     Route: 065

REACTIONS (3)
  - Steatorrhoea [Recovered/Resolved]
  - Weight increased [Not Recovered/Not Resolved]
  - Weight loss poor [Not Recovered/Not Resolved]
